FAERS Safety Report 7564042-X (Version None)
Quarter: 2011Q2

REPORT INFORMATION
  Report Type: 
  Country: None (occurrence: None)
  Receive Date: 20110622
  Receipt Date: 20110616
  Transmission Date: 20111010
  Serious: Yes (Hospitalization, Other)
  Sender: FDA-Public Use
  Company Number: US-ELI_LILLY_AND_COMPANY-US200910005209

PATIENT
  Age: 41 Year
  Sex: Male
  Weight: 99.773 kg

DRUGS (14)
  1. BYETTA [Suspect]
     Dosage: UNK, UNKNOWN
     Route: 065
     Dates: start: 20070201, end: 20070601
  2. NOVOLOG [Concomitant]
     Indication: DIABETES MELLITUS
     Dosage: UNK
     Dates: start: 20070101
  3. CREON [Concomitant]
     Dosage: 10 MG, QID
  4. METOPROLOL TARTRATE [Concomitant]
     Dosage: 25 MG, BID
  5. ACTOS [Concomitant]
     Dosage: 30 MG, QD
  6. TRICOR [Concomitant]
     Dosage: 145 MG, QD
  7. ASPIRIN [Concomitant]
     Dosage: 162 MG, QD
  8. CANDESARTAN CILEXETIL [Concomitant]
     Dosage: 16 MG, QD
  9. VASOTEC [Concomitant]
  10. LANTUS [Concomitant]
     Indication: DIABETES MELLITUS
     Dosage: UNK
     Dates: start: 20070101
  11. OMEPRAZOLE [Concomitant]
     Indication: GASTROOESOPHAGEAL REFLUX DISEASE
     Dosage: 20 MG, UNK
     Dates: start: 20030101
  12. METFORMIN HCL [Concomitant]
     Indication: DIABETES MELLITUS
     Dosage: 1000 MG, BID
     Dates: start: 19970101, end: 20070101
  13. LIPITOR [Concomitant]
     Indication: LIPIDS INCREASED
  14. LEXAPRO [Concomitant]
     Indication: STRESS
     Dosage: 10 MG, QD
     Dates: start: 20030101

REACTIONS (2)
  - PANCREATITIS ACUTE [None]
  - OFF LABEL USE [None]
